FAERS Safety Report 11127246 (Version 3)
Quarter: 2018Q2

REPORT INFORMATION
  Report Type: Report from Study
  Country: ZA (occurrence: ZA)
  Receive Date: 20150521
  Receipt Date: 20180607
  Transmission Date: 20180711
  Serious: Yes (Death, Hospitalization)
  Sender: FDA-Public Use
  Company Number: ZA-ROCHE-1579831

PATIENT
  Sex: Female

DRUGS (3)
  1. COSMOFER [Concomitant]
     Active Substance: IRON DEXTRAN
     Route: 042
  2. MIRCERA [Suspect]
     Active Substance: METHOXY POLYETHYLENE GLYCOL-EPOETIN BETA
     Indication: NEPHROGENIC ANAEMIA
     Route: 058
     Dates: start: 20090812
  3. MIRCERA [Suspect]
     Active Substance: METHOXY POLYETHYLENE GLYCOL-EPOETIN BETA
     Dosage: LAST DOSE OF MIRCERA GIVEN BEFORE 24/MAR/2015
     Route: 058
     Dates: start: 20120925

REACTIONS (1)
  - Hepatic failure [Fatal]
